FAERS Safety Report 16548145 (Version 1)
Quarter: 2019Q3

REPORT INFORMATION
  Report Type: Spontaneous
  Country: US (occurrence: US)
  Receive Date: 20190709
  Receipt Date: 20190709
  Transmission Date: 20191004
  Serious: No
  Sender: FDA-Public Use
  Company Number: US-ASTELLAS-2019US011974

PATIENT
  Age: 76 Year
  Sex: Male

DRUGS (1)
  1. MYRBETRIQ [Suspect]
     Active Substance: MIRABEGRON
     Indication: HYPERTONIC BLADDER
     Route: 065
     Dates: start: 201903, end: 201903

REACTIONS (6)
  - Stress [Unknown]
  - Dysuria [Unknown]
  - Pollakiuria [Unknown]
  - Hypertonic bladder [Unknown]
  - Urinary retention [Unknown]
  - Urinary tract infection [Unknown]
